FAERS Safety Report 15568655 (Version 1)
Quarter: 2018Q4

REPORT INFORMATION
  Report Type: Spontaneous
  Country: US (occurrence: US)
  Receive Date: 20181031
  Receipt Date: 20181031
  Transmission Date: 20190205
  Serious: Yes (Hospitalization)
  Sender: FDA-Public Use
  Company Number: US-ROCHE-2206003

PATIENT
  Age: 12 Year
  Sex: Male

DRUGS (4)
  1. SERTRALINE [Concomitant]
     Active Substance: SERTRALINE HYDROCHLORIDE
  2. IPRATROPIUM [Concomitant]
     Active Substance: IPRATROPIUM
  3. AMK (AMOXICILLIN/CLAVULANIC ACID) [Concomitant]
  4. NUTROPIN AQ [Suspect]
     Active Substance: SOMATROPIN
     Indication: RENAL TRANSPLANT
     Dosage: ONGOING: YES?5MG/2ML
     Route: 058
     Dates: start: 20180901

REACTIONS (4)
  - Pneumonia [Unknown]
  - Adenovirus infection [Unknown]
  - Off label use [Unknown]
  - Intentional product use issue [Unknown]

NARRATIVE: CASE EVENT DATE: 20181016
